FAERS Safety Report 21424099 (Version 7)
Quarter: 2022Q4

REPORT INFORMATION
  Report Type: Spontaneous
  Country: DE (occurrence: DE)
  Receive Date: 20221007
  Receipt Date: 20221215
  Transmission Date: 20230112
  Serious: Yes (Death, Life-Threatening, Hospitalization, Disabling, Other)
  Sender: FDA-Public Use
  Company Number: DE-NOVARTISPH-NVSC2022DE222079

PATIENT
  Age: 62 Year
  Sex: Female
  Weight: 45 kg

DRUGS (3)
  1. MAYZENT [Suspect]
     Active Substance: SIPONIMOD
     Indication: Secondary progressive multiple sclerosis
     Dosage: UNK
     Route: 048
     Dates: start: 20141209
  2. MAYZENT [Suspect]
     Active Substance: SIPONIMOD
     Dosage: UNK
     Route: 048
     Dates: start: 2015, end: 202209
  3. MAYZENT [Suspect]
     Active Substance: SIPONIMOD
     Dosage: 2 MG
     Route: 048
     Dates: start: 2020, end: 20220915

REACTIONS (12)
  - Progressive multifocal leukoencephalopathy [Fatal]
  - Paralysis [Fatal]
  - Facial paresis [Fatal]
  - Aphasia [Fatal]
  - Unresponsive to stimuli [Fatal]
  - Hemiparesis [Fatal]
  - Cognitive disorder [Fatal]
  - Dysarthria [Fatal]
  - Nervous system disorder [Fatal]
  - JC virus infection [Fatal]
  - Multiple sclerosis [Fatal]
  - Lymphopenia [Recovering/Resolving]

NARRATIVE: CASE EVENT DATE: 20220101
